FAERS Safety Report 5068727-9 (Version None)
Quarter: 2006Q3

REPORT INFORMATION
  Report Type: 
  Country: None (occurrence: None)
  Receive Date: 20060802
  Receipt Date: 20060303
  Transmission Date: 20061208
  Serious: No
  Sender: FDA-Public Use
  Company Number: US-BRISTOL-MYERS SQUIBB COMPANY-13302724

PATIENT
  Age: 72 Year
  Sex: Male
  Weight: 86 kg

DRUGS (5)
  1. COUMADIN [Suspect]
  2. ZOCOR [Concomitant]
  3. METOPROLOL [Concomitant]
  4. DIOVAN [Concomitant]
  5. NIFEDIPINE [Concomitant]

REACTIONS (1)
  - CHILLS [None]
